FAERS Safety Report 8399678-X (Version None)
Quarter: 2012Q2

REPORT INFORMATION
  Report Type: 
  Country: None (occurrence: None)
  Receive Date: 20120525
  Receipt Date: 20120522
  Transmission Date: 20120825
  Serious: Yes (Other)
  Sender: FDA-Public Use
  Company Number: TIR-01025

PATIENT
  Age: 49 Year
  Sex: Female

DRUGS (3)
  1. LEVOTHYROXINE SODIUM [Suspect]
     Indication: RADIOACTIVE IODINE THERAPY
     Dosage: 112 MCG FOR 5 DAYS WEEKLY/125 MCG FOR 2 DAYS WEEKLY, ORAL
     Route: 048
  2. LEVOTHYROXINE SODIUM [Suspect]
     Indication: BASEDOW'S DISEASE
     Dosage: 112 MCG FOR 5 DAYS WEEKLY/125 MCG FOR 2 DAYS WEEKLY, ORAL
     Route: 048
  3. MULTIVITAMIN CONTAINING IODINE [Suspect]
     Dates: start: 20120301

REACTIONS (9)
  - HYPOTENSION [None]
  - HEART RATE INCREASED [None]
  - DRUG INTERACTION [None]
  - BLOOD THYROID STIMULATING HORMONE DECREASED [None]
  - OEDEMA PERIPHERAL [None]
  - DEHYDRATION [None]
  - DYSPNOEA [None]
  - DRUG EFFECT DECREASED [None]
  - BLOOD THYROID STIMULATING HORMONE INCREASED [None]
